FAERS Safety Report 7423325-4 (Version None)
Quarter: 2011Q2

REPORT INFORMATION
  Report Type: 
  Country: None (occurrence: None)
  Receive Date: 20110419
  Receipt Date: 20110404
  Transmission Date: 20111010
  Serious: Yes (Hospitalization)
  Sender: FDA-Public Use
  Company Number: PHHY2011FR29054

PATIENT
  Age: 61 Year
  Sex: Male

DRUGS (6)
  1. PREVISCAN [Concomitant]
  2. DIGOXIN [Concomitant]
  3. METFORMIN AND SITAGLIPTIN [Suspect]
     Indication: TYPE 2 DIABETES MELLITUS
     Dosage: UNK
     Dates: start: 20100601
  4. PRAVIGARD PAC (COPACKAGED) [Concomitant]
  5. RASILEZ [Suspect]
     Indication: HYPERTENSION
     Dosage: UNK
     Route: 048
     Dates: start: 20100601, end: 20101225
  6. LASIX [Concomitant]

REACTIONS (10)
  - INFLAMMATION [None]
  - PRURITUS ALLERGIC [None]
  - SKIN OEDEMA [None]
  - RASH PUSTULAR [None]
  - VASCULAR PURPURA [None]
  - PURPURA [None]
  - ORCHITIS [None]
  - NECROSIS [None]
  - TOXIC SKIN ERUPTION [None]
  - PERIVASCULAR DERMATITIS [None]
